FAERS Safety Report 9907569 (Version 1)
Quarter: 2014Q1

REPORT INFORMATION
  Report Type: Report from Study
  Country: US (occurrence: US)
  Receive Date: 20140218
  Receipt Date: 20140218
  Transmission Date: 20141002
  Serious: Yes (Hospitalization)
  Sender: FDA-Public Use
  Company Number: US-ROCHE-1350358

PATIENT
  Sex: Female

DRUGS (6)
  1. LUCENTIS [Suspect]
     Indication: AGE-RELATED MACULAR DEGENERATION
     Route: 065
  2. COUMADIN [Concomitant]
     Indication: ATRIAL FIBRILLATION
  3. PROPAFENONE [Concomitant]
     Indication: ATRIAL FIBRILLATION
  4. SYNTHROID [Concomitant]
  5. OMEPRAZOLE [Concomitant]
  6. MECLIZINE [Concomitant]
     Indication: VERTIGO

REACTIONS (2)
  - Lumbar vertebral fracture [Unknown]
  - Visual impairment [Not Recovered/Not Resolved]
